FAERS Safety Report 5515703-5 (Version None)
Quarter: 2007Q4

REPORT INFORMATION
  Report Type: 
  Country: None (occurrence: None)
  Receive Date: 20071113
  Receipt Date: 20070904
  Transmission Date: 20080405
  Serious: No
  Sender: FDA-Public Use
  Company Number: A0678431A

PATIENT
  Age: 57 Year
  Sex: Male

DRUGS (4)
  1. COREG [Suspect]
     Dosage: 6.25MG TWICE PER DAY
     Route: 048
     Dates: start: 20070827
  2. HYDROCHLOROTHIAZIDE [Concomitant]
  3. COENZYME Q10 [Concomitant]
  4. ASPIRIN [Concomitant]

REACTIONS (3)
  - FATIGUE [None]
  - HEADACHE [None]
  - OEDEMA [None]
